FAERS Safety Report 4849098-7 (Version None)
Quarter: 2005Q4

REPORT INFORMATION
  Report Type: 
  Country: None (occurrence: None)
  Receive Date: 20051209
  Receipt Date: 20051206
  Transmission Date: 20060501
  Serious: Yes (Death, Life-Threatening, Other)
  Sender: FDA-Public Use
  Company Number: 2005PK02332

PATIENT
  Age: 66 Year
  Sex: Male

DRUGS (17)
  1. SEROQUEL [Suspect]
     Route: 048
     Dates: start: 20050315, end: 20050316
  2. SEROQUEL [Suspect]
     Route: 048
     Dates: start: 20050317, end: 20050317
  3. SEROQUEL [Suspect]
     Route: 048
     Dates: start: 20050318, end: 20050318
  4. SEROQUEL [Suspect]
     Route: 048
     Dates: start: 20050319, end: 20050319
  5. SEROQUEL [Suspect]
     Route: 048
     Dates: start: 20050320, end: 20050320
  6. SEROQUEL [Suspect]
     Route: 048
     Dates: start: 20050321, end: 20050321
  7. SEROQUEL [Suspect]
     Route: 048
     Dates: start: 20050322, end: 20050322
  8. SEROQUEL [Suspect]
     Route: 048
     Dates: start: 20050323, end: 20050323
  9. SEROQUEL [Suspect]
     Route: 048
     Dates: start: 20050324, end: 20050406
  10. REMERON [Suspect]
     Route: 048
     Dates: start: 20050314, end: 20050315
  11. REMERON [Suspect]
     Dates: start: 20050316, end: 20050411
  12. VALPROATE SODIUM [Suspect]
     Route: 048
     Dates: start: 20050407, end: 20050407
  13. VALPROATE SODIUM [Suspect]
     Route: 048
     Dates: start: 20050408, end: 20050411
  14. LIORESAL [Suspect]
     Route: 048
     Dates: start: 20050406, end: 20050411
  15. MEPHANOL [Suspect]
     Route: 048
     Dates: end: 20050411
  16. PRAVASTATIN SODIUM [Suspect]
     Route: 048
     Dates: end: 20050411
  17. XATRAL [Suspect]
     Route: 048
     Dates: end: 20050411

REACTIONS (2)
  - COMPLETED SUICIDE [None]
  - ELECTROENCEPHALOGRAM ABNORMAL [None]
